FAERS Safety Report 17828077 (Version 1)
Quarter: 2020Q2

REPORT INFORMATION
  Report Type: Spontaneous
  Country: SE (occurrence: SE)
  Receive Date: 20200527
  Receipt Date: 20200527
  Transmission Date: 20200714
  Serious: Yes (Other)
  Sender: FDA-Public Use
  Company Number: SE-ACCORD-183402

PATIENT
  Age: 53 Year
  Sex: Female
  Weight: 72 kg

DRUGS (2)
  1. LETROZOLE. [Suspect]
     Active Substance: LETROZOLE
     Indication: BREAST CANCER
     Dosage: 1 TABLET DAILY
     Dates: start: 20190720, end: 20200314
  2. CITALOPRAM [Concomitant]
     Active Substance: CITALOPRAM HYDROBROMIDE
     Dates: start: 20140420

REACTIONS (2)
  - Atrophic vulvovaginitis [Recovered/Resolved with Sequelae]
  - Hypoaesthesia [Recovered/Resolved with Sequelae]

NARRATIVE: CASE EVENT DATE: 20190801
